FAERS Safety Report 8866201 (Version 2)
Quarter: 2013Q2

REPORT INFORMATION
  Report Type: Spontaneous
  Country: IT (occurrence: IT)
  Receive Date: 20121025
  Receipt Date: 20130422
  Transmission Date: 20140414
  Serious: Yes (Hospitalization)
  Sender: FDA-Public Use
  Company Number: IT-ROCHE-1148717

PATIENT
  Age: 53 Year
  Sex: Female

DRUGS (3)
  1. ROACTEMRA [Suspect]
     Indication: RHEUMATOID ARTHRITIS
     Route: 042
     Dates: start: 20110315, end: 20121008
  2. METHYLPREDNISOLONE [Concomitant]
     Route: 048
  3. METHOTREXATE [Concomitant]
     Route: 058

REACTIONS (1)
  - Acute myocardial infarction [Unknown]
